FAERS Safety Report 7588566-4 (Version None)
Quarter: 2011Q2

REPORT INFORMATION
  Report Type: 
  Country: None (occurrence: None)
  Receive Date: 20110627
  Receipt Date: 20110616
  Transmission Date: 20111010
  Serious: Yes (Death, Hospitalization)
  Sender: FDA-Public Use
  Company Number: 118629

PATIENT
  Age: 73 Year
  Sex: Male

DRUGS (2)
  1. MITOXANTRONE [Suspect]
     Indication: CHEMOTHERAPY
  2. ETOPOSIDE [Suspect]
     Indication: CHEMOTHERAPY

REACTIONS (6)
  - DRUG RESISTANCE [None]
  - HEPATIC CIRRHOSIS [None]
  - HEPATITIS B [None]
  - HEPATIC ENCEPHALOPATHY [None]
  - INTERNATIONAL NORMALISED RATIO INCREASED [None]
  - HEPATIC FAILURE [None]
